FAERS Safety Report 8763419 (Version 1)
Quarter: 2012Q4

REPORT INFORMATION
  Report Type: 
  Country: BR (occurrence: BR)
  Receive Date: 20120831
  Receipt Date: 20120831
  Transmission Date: 20130627
  Serious: Yes (Other)
  Sender: FDA-Public Use
  Company Number: BR-PAR PHARMACEUTICAL, INC-2012SCPR004588

PATIENT

DRUGS (2)
  1. CABERGOLINE [Suspect]
     Indication: PITUITARY TUMOUR BENIGN
     Dosage: 1.5 mg, Weekly
     Route: 065
  2. CABERGOLINE [Suspect]
     Dosage: 0.75 mg, Weekly
     Route: 065

REACTIONS (1)
  - Pituitary haemorrhage [Recovering/Resolving]
